FAERS Safety Report 10383384 (Version 1)
Quarter: 2014Q3

REPORT INFORMATION
  Report Type: Spontaneous
  Country: BR (occurrence: BR)
  Receive Date: 20140814
  Receipt Date: 20140814
  Transmission Date: 20150326
  Serious: Yes (Other)
  Sender: FDA-Public Use
  Company Number: BR-ACCORD-025313

PATIENT
  Age: 68 Year
  Sex: Female
  Weight: 72.3 kg

DRUGS (5)
  1. PACLITAXEL/PACLITAXEL LIPOSOME [Suspect]
     Active Substance: PACLITAXEL
     Indication: BREAST CANCER
     Dosage: STRENGTH: 175 MG/M2 (80% DOSE)
     Route: 042
     Dates: start: 20140730, end: 20140730
  2. DIFENIDRIN [Concomitant]
     Active Substance: DIPHENHYDRAMINE
     Indication: PROPHYLAXIS
     Dosage: SF 100 ML + DIFENIDRIN
     Route: 042
     Dates: start: 20140730, end: 20140730
  3. DEXAMETHASONE. [Concomitant]
     Active Substance: DEXAMETHASONE
     Indication: PROPHYLAXIS
     Dosage: SF 100 ML + DEXAMETHASONE
     Route: 042
     Dates: start: 20140730, end: 20140730
  4. RANITIDINE [Concomitant]
     Active Substance: RANITIDINE\RANITIDINE HYDROCHLORIDE
     Indication: PROPHYLAXIS
     Dosage: 50 MG/2ML
     Route: 042
     Dates: start: 20140730, end: 20140730
  5. ONDANSETRON [Concomitant]
     Active Substance: ONDANSETRON
     Indication: PROPHYLAXIS
     Dosage: 8 MG/4ML
     Route: 042
     Dates: start: 20140730, end: 20140730

REACTIONS (3)
  - Hyperaemia [Recovered/Resolved]
  - Choking sensation [Recovered/Resolved]
  - Vision blurred [Recovered/Resolved]

NARRATIVE: CASE EVENT DATE: 20140730
